FAERS Safety Report 25213078 (Version 1)
Quarter: 2025Q2

REPORT INFORMATION
  Report Type: Spontaneous
  Country: US (occurrence: US)
  Receive Date: 20250418
  Receipt Date: 20250418
  Transmission Date: 20250716
  Serious: Yes (Hospitalization, Other)
  Sender: MERCK SHARP & DOHME LLC
  Company Number: US-009507513-2276649

PATIENT
  Sex: Female

DRUGS (3)
  1. KEYTRUDA [Suspect]
     Active Substance: PEMBROLIZUMAB
     Indication: Endometrial cancer
     Dosage: 200 MG EVERY 3 WEEKS
  2. LENVIMA [Suspect]
     Active Substance: LENVATINIB
     Indication: Endometrial cancer
     Route: 048
  3. XGEVA [Concomitant]
     Active Substance: DENOSUMAB

REACTIONS (10)
  - Hospitalisation [Unknown]
  - Hospitalisation [Unknown]
  - Hospitalisation [Unknown]
  - Urinary tract infection [Unknown]
  - Mental status changes [Unknown]
  - Autoimmune hepatitis [Unknown]
  - Adverse reaction [Unknown]
  - Renal disorder [Unknown]
  - Peripheral swelling [Unknown]
  - Oedema [Unknown]
